FAERS Safety Report 7650981-8 (Version None)
Quarter: 2011Q3

REPORT INFORMATION
  Report Type: 
  Country: None (occurrence: None)
  Receive Date: 20110802
  Receipt Date: 20110725
  Transmission Date: 20111222
  Serious: Yes (Hospitalization)
  Sender: FDA-Public Use
  Company Number: SE-PURDUE-GBR-2011-0008582

PATIENT
  Sex: Female

DRUGS (19)
  1. ALPHAGAN P [Concomitant]
  2. ALLOPURINOL [Concomitant]
  3. AZOPT [Concomitant]
  4. PULMICORT [Concomitant]
  5. KALCIPOS-D [Concomitant]
  6. ENALAPRIL MALEATE [Concomitant]
  7. SEREVENT [Concomitant]
  8. LAXOBERAL [Concomitant]
  9. FUROSEMIDE [Concomitant]
  10. BUPRENORPHINE [Suspect]
     Indication: PRODUCT USED FOR UNKNOWN INDICATION
     Dosage: UNK
     Route: 062
     Dates: end: 20110427
  11. FOSAMAX [Concomitant]
     Dosage: UNK, 1/WEEK
  12. OMEPRAZOLE [Concomitant]
  13. MIRTAZAPINE [Concomitant]
  14. IMDUR [Concomitant]
  15. TRAVATAN Z [Concomitant]
  16. CITALOPRAM HYDROBROMIDE [Concomitant]
  17. ARTELAC                            /00445101/ [Concomitant]
  18. ALVEDON [Concomitant]
  19. PREDNISOLONE [Concomitant]

REACTIONS (6)
  - HEADACHE [None]
  - SOMNOLENCE [None]
  - TRANSIENT ISCHAEMIC ATTACK [None]
  - NECK PAIN [None]
  - FEELING ABNORMAL [None]
  - VERTIGO [None]
